FAERS Safety Report 5513278-8 (Version None)
Quarter: 2007Q4

REPORT INFORMATION
  Report Type: 
  Country: None (occurrence: None)
  Receive Date: 20071108
  Receipt Date: 20071023
  Transmission Date: 20080405
  Serious: Yes (Hospitalization)
  Sender: FDA-Public Use
  Company Number: PHBS2007US17818

PATIENT
  Age: 34 Year
  Sex: Male

DRUGS (4)
  1. NORTRIPTYLINE HCL [Suspect]
     Indication: DRUG ABUSER
  2. AMITRIPTYLINE HCL [Suspect]
     Indication: DRUG ABUSER
  3. PROLINTANE(PROLINTANE) [Suspect]
     Indication: DRUG ABUSER
  4. NICOTINE [Suspect]

REACTIONS (12)
  - AGGRESSION [None]
  - AGITATION [None]
  - BLOOD PRESSURE INCREASED [None]
  - CONFUSIONAL STATE [None]
  - DRUG ABUSER [None]
  - DRUG INEFFECTIVE [None]
  - GLASGOW COMA SCALE ABNORMAL [None]
  - HEART RATE INCREASED [None]
  - MYDRIASIS [None]
  - PUPILLARY REFLEX IMPAIRED [None]
  - SINUS TACHYCARDIA [None]
  - SPEECH DISORDER [None]
